FAERS Safety Report 18135610 (Version 2)
Quarter: 2020Q3

REPORT INFORMATION
  Report Type: Spontaneous
  Country: AR (occurrence: AR)
  Receive Date: 20200811
  Receipt Date: 20200824
  Transmission Date: 20201103
  Serious: Yes (Other)
  Sender: FDA-Public Use
  Company Number: AR-PFIZER INC-2020305743

PATIENT
  Age: 7 Year
  Sex: Female

DRUGS (1)
  1. GENOTROPIN [Suspect]
     Active Substance: SOMATROPIN
     Indication: BODY HEIGHT ABNORMAL
     Dosage: 0.6 TO 1 MG 6 TIMES PER WEEK
     Dates: start: 20191007

REACTIONS (3)
  - Skin haemorrhage [Recovered/Resolved]
  - Hypersensitivity [Recovered/Resolved]
  - Bone development abnormal [Unknown]

NARRATIVE: CASE EVENT DATE: 202001
